FAERS Safety Report 11065795 (Version 2)
Quarter: 2015Q2

REPORT INFORMATION
  Report Type: Spontaneous
  Country: US (occurrence: US)
  Receive Date: 20150425
  Receipt Date: 20150524
  Transmission Date: 20150821
  Serious: No
  Sender: FDA-Public Use
  Company Number: US-JNJFOC-20130817537

PATIENT
  Sex: Female
  Weight: 83.92 kg

DRUGS (2)
  1. FENTORA [Concomitant]
     Active Substance: FENTANYL CITRATE
     Indication: PAIN
     Route: 048
  2. FENTANYL TRANSDERMAL SYSTEM [Suspect]
     Active Substance: FENTANYL
     Indication: PAIN
     Dosage: 100 UG/HR + 100 UG/HR + 50 UG/HR
     Route: 062

REACTIONS (2)
  - Product adhesion issue [Unknown]
  - Application site urticaria [Recovered/Resolved]
